FAERS Safety Report 8942193 (Version 1)
Quarter: 2012Q4

REPORT INFORMATION
  Report Type: Spontaneous
  Country: US (occurrence: None)
  Receive Date: 20121129
  Receipt Date: 20121129
  Transmission Date: 20130627
  Serious: Yes (Life-Threatening, Hospitalization)
  Sender: FDA-Public Use
  Company Number: None

PATIENT
  Age: 69 Year
  Sex: Male

DRUGS (1)
  1. VIVITROL [Suspect]
     Indication: DRUG THERAPY
     Route: 030
     Dates: start: 20110802, end: 20110802

REACTIONS (3)
  - Delirium [None]
  - Agitation [None]
  - No therapeutic response [None]
